FAERS Safety Report 6424882-7 (Version None)
Quarter: 2009Q4

REPORT INFORMATION
  Report Type: 
  Country: None (occurrence: None)
  Receive Date: 20091103
  Receipt Date: 20091021
  Transmission Date: 20100525
  Serious: Yes (Other)
  Sender: FDA-Public Use
  Company Number: US-ELI_LILLY_AND_COMPANY-US200910005220

PATIENT
  Sex: Female

DRUGS (3)
  1. FORTEO [Suspect]
     Indication: PELVIC FRACTURE
     Dates: start: 20090101
  2. CRESTOR [Concomitant]
     Dosage: 5 MG, UNK
  3. SYNTHROID [Concomitant]
     Dosage: 75 MG, UNK

REACTIONS (1)
  - PELVIC FRACTURE [None]
